FAERS Safety Report 24328749 (Version 1)
Quarter: 2024Q3

REPORT INFORMATION
  Report Type: Spontaneous
  Country: IN (occurrence: IN)
  Receive Date: 20240917
  Receipt Date: 20240917
  Transmission Date: 20241017
  Serious: Yes (Hospitalization, Other)
  Sender: GILEAD
  Company Number: IN-GILEAD-2024-0686750

PATIENT
  Age: 45 Year
  Sex: Female

DRUGS (1)
  1. TRODELVY [Suspect]
     Active Substance: SACITUZUMAB GOVITECAN-HZIY
     Indication: Triple negative breast cancer
     Dosage: 180 MG (FINISHED 2 CYCLES OF TRODELVY)
     Route: 065

REACTIONS (1)
  - Metastases to central nervous system [Not Recovered/Not Resolved]
